FAERS Safety Report 8170619-3 (Version None)
Quarter: 2012Q1

REPORT INFORMATION
  Report Type: 
  Country: None (occurrence: None)
  Receive Date: 20120104
  Receipt Date: 20111006
  Transmission Date: 20120608
  Serious: No
  Sender: FDA-Public Use
  Company Number: 2011HGS-002621

PATIENT
  Age: 63 Year
  Sex: Female
  Weight: 75.7507 kg

DRUGS (5)
  1. PAREDNISONE (PREDNISONE) [Concomitant]
  2. ALBUTEROL [Concomitant]
  3. COUMADIN [Concomitant]
  4. BENLYSTA [Suspect]
     Indication: SYSTEMIC LUPUS ERYTHEMATOSUS
     Dosage: 10 MG/KG, 1 IN 1 M, INTRAVENOUS
     Route: 042
     Dates: start: 20110518, end: 20110721
  5. ADVAIR (SERETIDE MITE) (FLUTICASONE PROPIONATE, SALMETEROL XINAFOATE) [Concomitant]

REACTIONS (7)
  - PYREXIA [None]
  - DEPRESSED MOOD [None]
  - MYALGIA [None]
  - INFUSION RELATED REACTION [None]
  - NAUSEA [None]
  - HEADACHE [None]
  - VOMITING [None]
